FAERS Safety Report 8336339-7 (Version None)
Quarter: 2012Q2

REPORT INFORMATION
  Report Type: 
  Country: None (occurrence: None)
  Receive Date: 20120504
  Receipt Date: 20120424
  Transmission Date: 20120825
  Serious: Yes (Hospitalization)
  Sender: FDA-Public Use
  Company Number: PHHY2011EC69003

PATIENT
  Sex: Female

DRUGS (3)
  1. GLUCOSAMINE W/CHONDROITIN [Concomitant]
     Indication: ARTHRITIS
     Route: 048
  2. EXFORGE [Concomitant]
     Dosage: 1 (5/ 160 MG) DF, UNK
     Route: 048
  3. ZOLEDRONOC ACID [Suspect]
     Indication: OSTEOPENIA
     Dosage: 5 MG/100 ML
     Route: 042
     Dates: start: 20110501

REACTIONS (7)
  - DYSPNOEA [None]
  - THROAT TIGHTNESS [None]
  - COUGH [None]
  - INFLUENZA [None]
  - OROPHARYNGEAL PAIN [None]
  - HYPERSENSITIVITY [None]
  - PAIN [None]
